FAERS Safety Report 25301346 (Version 1)
Quarter: 2025Q2

REPORT INFORMATION
  Report Type: Spontaneous
  Country: US (occurrence: None)
  Receive Date: 20250511
  Receipt Date: 20250511
  Transmission Date: 20250717
  Serious: Yes (Life-Threatening, Hospitalization)
  Sender: FDA-CTU
  Company Number: None

PATIENT
  Age: 34 Year
  Sex: Female
  Weight: 54.45 kg

DRUGS (5)
  1. BUPRENORPHINE\NALOXONE [Suspect]
     Active Substance: BUPRENORPHINE\NALOXONE
     Indication: Drug use disorder
     Dosage: TWICE AQ DAY ORAL
     Route: 048
     Dates: start: 20230630, end: 20240904
  2. Ostomy products [Concomitant]
  3. CLONIDINE [Concomitant]
     Active Substance: CLONIDINE
  4. ARIPIPRAZOLE [Concomitant]
     Active Substance: ARIPIPRAZOLE
  5. PROBIOTICS NOS [Concomitant]
     Active Substance: PROBIOTICS NOS

REACTIONS (2)
  - Large intestine perforation [None]
  - Sepsis [None]

NARRATIVE: CASE EVENT DATE: 20240904
